FAERS Safety Report 5910450-X (Version None)
Quarter: 2008Q4

REPORT INFORMATION
  Report Type: 
  Country: None (occurrence: None)
  Receive Date: 20081006
  Receipt Date: 20081006
  Transmission Date: 20090506
  Serious: Yes (Hospitalization, Other)
  Sender: FDA-Public Use
  Company Number: None

PATIENT
  Age: 38 Year
  Sex: Male
  Weight: 98.8842 kg

DRUGS (2)
  1. TOPIRAMATE [Suspect]
     Indication: CLUSTER HEADACHE
     Dosage: 100 MG TWICE A DAY PO
     Route: 048
     Dates: start: 20080901, end: 20081002
  2. TOPIRAMATE [Suspect]
     Indication: MIGRAINE
     Dosage: 100 MG TWICE A DAY PO
     Route: 048
     Dates: start: 20080901, end: 20081002

REACTIONS (2)
  - VISION BLURRED [None]
  - VISUAL ACUITY REDUCED [None]
